FAERS Safety Report 6701424-X (Version None)
Quarter: 2010Q2

REPORT INFORMATION
  Report Type: 
  Country: None (occurrence: None)
  Receive Date: 20100429
  Receipt Date: 20100428
  Transmission Date: 20101027
  Serious: Yes (Hospitalization)
  Sender: FDA-Public Use
  Company Number: BR-ELI_LILLY_AND_COMPANY-BR201003006508

PATIENT
  Sex: Female
  Weight: 57.5 kg

DRUGS (5)
  1. GEMCITABINE HCL [Suspect]
     Indication: BREAST CANCER METASTATIC
     Dosage: 1250 MG/M2, OTHER
     Route: 042
     Dates: start: 20100211
  2. PACLITAXEL [Suspect]
     Indication: BREAST CANCER METASTATIC
     Dosage: 175 MG/M2, OTHER
     Route: 042
     Dates: start: 20100211
  3. DIMORF [Concomitant]
     Dosage: UNK, UNKNOWN
     Route: 065
     Dates: start: 20100221
  4. DIPYRONE [Concomitant]
     Dosage: UNK, UNKNOWN
     Route: 065
     Dates: start: 20100209
  5. SERTRALINE HCL [Concomitant]
     Dosage: UNK, UNKNOWN
     Route: 065
     Dates: start: 20100311, end: 20100311

REACTIONS (2)
  - LOBAR PNEUMONIA [None]
  - SEPSIS [None]
